FAERS Safety Report 4271670-6 (Version None)
Quarter: 2004Q1

REPORT INFORMATION
  Report Type: 
  Country: None (occurrence: None)
  Receive Date: 20040115
  Receipt Date: 20031210
  Transmission Date: 20041129
  Serious: Yes (Other)
  Sender: FDA-Public Use
  Company Number: DE-BRISTOL-MYERS SQUIBB COMPANY-12458741

PATIENT
  Age: 63 Year
  Sex: Female
  Weight: 78 kg

DRUGS (6)
  1. CYCLOPHOSPHAMIDE [Suspect]
     Indication: BREAST CANCER
     Dosage: CYCLE 5 INITIATED ON 28-NOV-2003
     Route: 048
     Dates: start: 20031024, end: 20031106
  2. UROMITEXAN TABS [Suspect]
     Indication: BREAST CANCER
     Dosage: CYCLE 5 INITIATED ON 28-NOV-2003
     Route: 048
     Dates: start: 20031024, end: 20031106
  3. FLUOROURACIL [Suspect]
     Indication: BREAST CANCER
     Dosage: CYCLE 5: 05-DEC-2003
     Route: 042
     Dates: start: 20031106, end: 20031106
  4. EPIRUBICIN [Suspect]
     Indication: BREAST CANCER
     Dosage: CYCLE 5: 05-DEC-2003
     Route: 042
     Dates: start: 20031106, end: 20031106
  5. NEUPOGEN [Concomitant]
     Route: 058
  6. TAO [Concomitant]

REACTIONS (2)
  - PHLEBOTHROMBOSIS [None]
  - PYODERMA [None]
